FAERS Safety Report 5267986-7 (Version None)
Quarter: 2007Q1

REPORT INFORMATION
  Report Type: 
  Country: None (occurrence: None)
  Receive Date: 20061214
  Receipt Date: 20060417
  Transmission Date: 20070707
  Serious: Yes (Hospitalization)
  Sender: FDA-Public Use
  Company Number: 20060510906

PATIENT
  Age: 35 Year
  Sex: Female

DRUGS (4)
  1. XANAX [Suspect]
     Indication: ILL-DEFINED DISORDER
     Dosage: ONCE, ORAL
     Route: 048
     Dates: start: 20050609, end: 20050609
  2. LUNESTA [Suspect]
     Indication: ILL-DEFINED DISORDER
     Dosage: ONCE, ORAL
     Route: 048
     Dates: start: 20050609, end: 20050609
  3. MELANTONIN (MELATONIN) [Suspect]
     Indication: ILL-DEFINED DISORDER
     Dosage: ONCE, ORAL
     Route: 048
     Dates: start: 20050609, end: 20050609
  4. ALCOHOL (ETHANOL) [Suspect]
     Indication: ILL-DEFINED DISORDER
     Dosage: ONCE
     Dates: start: 20050609, end: 20050609

REACTIONS (2)
  - INTENTIONAL OVERDOSE [None]
  - SOMNOLENCE [None]
